FAERS Safety Report 5212205-0 (Version None)
Quarter: 2006Q4

REPORT INFORMATION
  Report Type: 
  Country: None (occurrence: None)
  Receive Date: 20061115
  Receipt Date: 20060322
  Transmission Date: 20070319
  Serious: Yes (Hospitalization)
  Sender: FDA-Public Use
  Company Number: US-JNJFOC-20051103242

PATIENT
  Age: 45 Year
  Sex: Female

DRUGS (1)
  1. ELMIRON [Suspect]
     Indication: CYSTITIS INTERSTITIAL
     Dosage: 100 MG, 2 IN 1 DAY; ORAL
     Route: 048
     Dates: start: 20030101, end: 20051101

REACTIONS (2)
  - ANAEMIA [None]
  - COLITIS [None]
